FAERS Safety Report 8274256-1 (Version None)
Quarter: 2012Q2

REPORT INFORMATION
  Report Type: 
  Country: None (occurrence: None)
  Receive Date: 20120411
  Receipt Date: 20120411
  Transmission Date: 20120825
  Serious: Yes (Hospitalization)
  Sender: FDA-Public Use
  Company Number: None

PATIENT
  Age: 63 Year
  Sex: Male

DRUGS (3)
  1. REVLIMID [Suspect]
     Indication: MULTIPLE MYELOMA
  2. ZOMETA [Interacting]
     Route: 042
  3. VELCADE [Concomitant]
     Indication: MULTIPLE MYELOMA

REACTIONS (3)
  - DEPRESSION [None]
  - RESPIRATORY DISORDER [None]
  - FATIGUE [None]
